FAERS Safety Report 5296468-1 (Version None)
Quarter: 2007Q2

REPORT INFORMATION
  Report Type: 
  Country: None (occurrence: None)
  Receive Date: 20070413
  Receipt Date: 20070405
  Transmission Date: 20071010
  Serious: Yes (Other)
  Sender: FDA-Public Use
  Company Number: FR-PFIZER INC-2007027726

PATIENT
  Age: 24 Year
  Sex: Female

DRUGS (4)
  1. LITHIUM CARBONATE [Suspect]
     Indication: DEPRESSION
  2. ETHINYL ESTRADIOL TAB [Concomitant]
     Indication: ORAL CONTRACEPTION
     Dosage: DAILY DOSE:15
     Route: 048
  3. GESTODENE [Concomitant]
     Indication: ORAL CONTRACEPTION
     Dosage: DAILY DOSE:60
     Route: 048
  4. VENLAFAXINE HCL [Concomitant]
     Indication: DEPRESSION
     Dosage: DAILY DOSE:200MG

REACTIONS (2)
  - HYPOMANIA [None]
  - MENOMETRORRHAGIA [None]
